FAERS Safety Report 16754261 (Version 1)
Quarter: 2019Q3

REPORT INFORMATION
  Report Type: Spontaneous
  Country: GB (occurrence: GB)
  Receive Date: 20190829
  Receipt Date: 20190829
  Transmission Date: 20191005
  Serious: Yes (Life-Threatening, Disabling, Congenital Anomaly, Other)
  Sender: FDA-Public Use
  Company Number: GB-IPSEN BIOPHARMACEUTICALS, INC.-2019-15269

PATIENT
  Age: 35 Year
  Sex: Male
  Weight: 82.55 kg

DRUGS (1)
  1. DYSPORT [Suspect]
     Active Substance: ABOBOTULINUMTOXINA
     Indication: JOINT DISLOCATION
     Dosage: UNKNOWN
     Route: 051
     Dates: start: 20020221, end: 20020222

REACTIONS (6)
  - Dysphagia [Unknown]
  - Suspected product quality issue [Unknown]
  - Aphasia [Unknown]
  - Suffocation feeling [Unknown]
  - Vocal cord paralysis [Unknown]
  - Alopecia [Recovered/Resolved]

NARRATIVE: CASE EVENT DATE: 20020223
